FAERS Safety Report 5663474-4 (Version None)
Quarter: 2008Q1

REPORT INFORMATION
  Report Type: 
  Country: None (occurrence: None)
  Receive Date: 20080313
  Receipt Date: 20080304
  Transmission Date: 20080703
  Serious: Yes (Hospitalization)
  Sender: FDA-Public Use
  Company Number: AU-GENENTECH-246754

PATIENT
  Sex: Female
  Weight: 46 kg

DRUGS (13)
  1. BEVACIZUMAB [Suspect]
     Indication: COLORECTAL CANCER METASTATIC
     Dosage: 7.5 MG, Q3W
     Route: 042
     Dates: start: 20070516
  2. BEVACIZUMAB [Suspect]
     Dosage: 400 MG, UNK
  3. BEVACIZUMAB [Suspect]
     Dosage: 340 MG, UNK
  4. CAPECITABINE [Suspect]
     Indication: COLORECTAL CANCER METASTATIC
     Dosage: 1500 MG, BID
     Route: 048
     Dates: start: 20070516, end: 20070817
  5. MITOMYCIN [Suspect]
     Indication: COLORECTAL CANCER METASTATIC
     Dosage: 7 MG/M2, Q6W
     Route: 042
     Dates: start: 20070516
  6. MITOMYCIN [Suspect]
     Dosage: 10 MG, UNK
  7. GASTRO-STOP [Concomitant]
     Indication: DRUG USE FOR UNKNOWN INDICATION
     Dosage: UNK, UNK
     Dates: start: 20070812, end: 20070822
  8. METOCLOPRAMIDE [Concomitant]
     Indication: DRUG USE FOR UNKNOWN INDICATION
     Dosage: UNK, UNK
     Dates: start: 20070809
  9. SLOW-K [Concomitant]
     Indication: DRUG USE FOR UNKNOWN INDICATION
     Dates: start: 20070814, end: 20070814
  10. SYNACTHEN [Concomitant]
     Indication: DRUG USE FOR UNKNOWN INDICATION
     Dosage: UNK, UNK
     Dates: start: 20070814, end: 20070814
  11. CHLORVESCENT [Concomitant]
     Indication: DRUG USE FOR UNKNOWN INDICATION
     Dates: start: 20070813, end: 20070813
  12. XYLOCAINE VISCOUS [Concomitant]
     Indication: PROPHYLAXIS
     Dosage: 10 ML, TID
  13. DIAZEPAM [Concomitant]
     Indication: ANXIETY
     Dosage: 2.5 MG, PRN
     Dates: start: 20070822

REACTIONS (2)
  - DEHYDRATION [None]
  - RENAL FAILURE ACUTE [None]
